FAERS Safety Report 7669330-4 (Version None)
Quarter: 2011Q3

REPORT INFORMATION
  Report Type: 
  Country: None (occurrence: None)
  Receive Date: 20110808
  Receipt Date: 20110803
  Transmission Date: 20111222
  Serious: Yes (Disabling)
  Sender: FDA-Public Use
  Company Number: PHHY2010CA54434

PATIENT
  Sex: Female

DRUGS (11)
  1. RABEPRAZOLE SODIUM [Concomitant]
  2. CALCIUM CARBONATE [Concomitant]
     Dosage: UNK
     Dates: start: 19990101
  3. ASACOL [Concomitant]
  4. SINGULAIR [Concomitant]
  5. VITAMIN D [Concomitant]
     Dosage: 1200 IU, UNK
     Dates: start: 19990101
  6. CLONAZEPAM [Concomitant]
  7. FENOFIBRATE [Concomitant]
  8. FOLIC ACID [Concomitant]
  9. FORTEO [Concomitant]
     Dosage: 20 MG, UNK
     Dates: start: 20100827
  10. ZOLEDRONOC ACID [Suspect]
     Indication: OSTEOPOROSIS
     Dosage: 5 MG, UNK
     Dates: start: 20091114
  11. LOPERAMIDE HCL [Concomitant]

REACTIONS (4)
  - THORACIC VERTEBRAL FRACTURE [None]
  - PAIN [None]
  - DRUG INEFFECTIVE [None]
  - SPINAL COMPRESSION FRACTURE [None]
